FAERS Safety Report 10017928 (Version 2)
Quarter: 2014Q1

REPORT INFORMATION
  Report Type: Spontaneous
  Country: US (occurrence: US)
  Receive Date: 20140318
  Receipt Date: 20140318
  Transmission Date: 20141002
  Serious: Yes (Other)
  Sender: FDA-Public Use
  Company Number: US-BRISTOL-MYERS SQUIBB COMPANY-18871574

PATIENT
  Age: 72 Year
  Sex: Female
  Weight: 39 kg

DRUGS (5)
  1. ERBITUX [Suspect]
     Indication: COLON CANCER
     Dosage: EVERY MONDAY, LAST DOSE:20MAY2013?STARTED WITH 500MG, FROM 18NOV12 320MG
     Route: 042
     Dates: start: 20121112, end: 20140106
  2. CAMPTOSAR [Suspect]
  3. LEVOTHYROXINE [Concomitant]
  4. VITAMIN B [Concomitant]
  5. BIOTIN [Concomitant]

REACTIONS (9)
  - Malignant neoplasm progression [Unknown]
  - Alopecia [Unknown]
  - Diarrhoea [Unknown]
  - Dandruff [Unknown]
  - Fatigue [Unknown]
  - Weight increased [Unknown]
  - Acne [Unknown]
  - Cough [Unknown]
  - Pruritus [Unknown]
